FAERS Safety Report 9136174 (Version 1)
Quarter: 2013Q1

REPORT INFORMATION
  Report Type: Spontaneous
  Country: US (occurrence: US)
  Receive Date: 20130304
  Receipt Date: 20130304
  Transmission Date: 20140127
  Serious: No
  Sender: FDA-Public Use
  Company Number: US-ABBOTT-12P-163-0928034-00

PATIENT
  Sex: Male
  Weight: 86.26 kg

DRUGS (12)
  1. ANDROGEL 1% [Suspect]
     Indication: BLOOD TESTOSTERONE DECREASED
     Dosage: 2 PACKETS, 1 IN 1 DAY
     Dates: start: 2000
  2. CALCIUM [Concomitant]
     Indication: BONE DISORDER
  3. METHADONE [Concomitant]
     Indication: PAIN
  4. ENALAPRIL [Concomitant]
     Indication: HYPERTENSION
  5. TERAZOSIN [Concomitant]
     Indication: PROSTATOMEGALY
  6. LEVOTHYROXINE [Concomitant]
     Indication: HYPOTHYROIDISM
  7. DICLOFENAC [Concomitant]
     Indication: PAIN
  8. METOPROLOL [Concomitant]
     Indication: HYPERTENSION
  9. CLOPIDOGREL [Concomitant]
     Indication: CARDIAC DISORDER
  10. SIMVASTATIN [Concomitant]
     Indication: BLOOD CHOLESTEROL INCREASED
  11. FOLIC ACID [Concomitant]
     Indication: PRODUCT USED FOR UNKNOWN INDICATION
  12. GABAPENTIN [Concomitant]
     Indication: NEUROPATHY PERIPHERAL

REACTIONS (6)
  - Drug dose omission [Unknown]
  - Drug ineffective [Unknown]
  - Hot flush [Recovered/Resolved]
  - Asthenia [Recovered/Resolved]
  - Anxiety [Recovered/Resolved]
  - Hot flush [Recovered/Resolved]
